FAERS Safety Report 13377488 (Version 1)
Quarter: 2017Q1

REPORT INFORMATION
  Report Type: Spontaneous
  Country: US (occurrence: US)
  Receive Date: 20170328
  Receipt Date: 20170328
  Transmission Date: 20170429
  Serious: Yes (Other)
  Sender: FDA-Public Use
  Company Number: None

PATIENT
  Age: 80 Year
  Sex: Female
  Weight: 92.99 kg

DRUGS (18)
  1. EPIPEN [Concomitant]
     Active Substance: EPINEPHRINE
  2. AVASTIN [Concomitant]
     Active Substance: BEVACIZUMAB
  3. FISH OIL [Concomitant]
     Active Substance: FISH OIL
  4. STENT DEVICE [Concomitant]
     Active Substance: DEVICE
  5. OXYBUTYNIN [Concomitant]
     Active Substance: OXYBUTYNIN
  6. VITAMIN B12 [Concomitant]
     Active Substance: CYANOCOBALAMIN
  7. HIP REPLACEMENT [Concomitant]
  8. PAIN FORMULA [Concomitant]
  9. LEVOTHYROXINE. [Concomitant]
     Active Substance: LEVOTHYROXINE
  10. COMPRESSED STOCKINGS [Concomitant]
  11. KETOCONAZOLE. [Concomitant]
     Active Substance: KETOCONAZOLE
  12. ALBUTEROL. [Concomitant]
     Active Substance: ALBUTEROL
  13. VITAMIN D3 [Concomitant]
     Active Substance: CHOLECALCIFEROL
  14. VITAMIN B-6 [Concomitant]
     Active Substance: PYRIDOXINE
  15. PACEMAKER [Concomitant]
  16. LOSARTAN. [Concomitant]
     Active Substance: LOSARTAN
  17. GABAPENTIN 100MG CAPSULES [Suspect]
     Active Substance: GABAPENTIN
     Indication: PAIN IN EXTREMITY
     Dosage: CAPSULES PILL ONLY ONE MOUTH
     Route: 048
     Dates: start: 20170227
  18. CLOPIDOGREL [Concomitant]
     Active Substance: CLOPIDOGREL BISULFATE

REACTIONS (2)
  - Vertigo [None]
  - Visual impairment [None]

NARRATIVE: CASE EVENT DATE: 20170328
